FAERS Safety Report 21399508 (Version 1)
Quarter: 2022Q4

REPORT INFORMATION
  Report Type: Spontaneous
  Country: GB (occurrence: GB)
  Receive Date: 20221001
  Receipt Date: 20221001
  Transmission Date: 20230112
  Serious: Yes (Disabling, Other)
  Sender: FDA-Public Use
  Company Number: GB-MHRA-MED-202209200748581130-DZVWP

PATIENT
  Age: 39 Year
  Sex: Female
  Weight: 80 kg

DRUGS (1)
  1. LUPRON DEPOT [Suspect]
     Active Substance: LEUPROLIDE ACETATE
     Indication: Endometriosis
     Dosage: UNK
     Route: 065
     Dates: start: 20220510, end: 20220920

REACTIONS (5)
  - Muscle spasms [Not Recovered/Not Resolved]
  - Arthralgia [Not Recovered/Not Resolved]
  - Hypoaesthesia [Not Recovered/Not Resolved]
  - Speech disorder developmental [Not Recovered/Not Resolved]
  - Myalgia [Not Recovered/Not Resolved]

NARRATIVE: CASE EVENT DATE: 20220817
